FAERS Safety Report 18890675 (Version 2)
Quarter: 2021Q2

REPORT INFORMATION
  Report Type: Report from Study
  Country: None (occurrence: US)
  Receive Date: 20210215
  Receipt Date: 20210401
  Transmission Date: 20210717
  Serious: Yes (Hospitalization)
  Sender: FDA-Public Use
  Company Number: US-ABBVIE-21K-163-3770119-00

PATIENT
  Sex: Male

DRUGS (1)
  1. HUMIRA [Suspect]
     Active Substance: ADALIMUMAB
     Indication: CROHN^S DISEASE
     Route: 058

REACTIONS (7)
  - Vestibular disorder [Unknown]
  - Extraocular muscle disorder [Unknown]
  - Asthenia [Unknown]
  - Haemorrhage [Unknown]
  - Blood pressure increased [Unknown]
  - Dizziness [Unknown]
  - Hyperhidrosis [Unknown]
